FAERS Safety Report 8506098 (Version 2)
Quarter: 2012Q4

REPORT INFORMATION
  Report Type: Spontaneous
  Country: None (occurrence: None)
  Receive Date: 20120405
  Receipt Date: 20120926
  Transmission Date: 20130627
  Serious: Yes (Life-Threatening, Other)
  Sender: FDA-Public Use
  Company Number: AUR-APL-2012-01615

PATIENT
  Age: 3 Month
  Sex: Female
  Weight: 6.4 kg

DRUGS (3)
  1. RANITIDINE HYDROCHLORIDE [Suspect]
     Indication: GASTROOESOPHAGEAL REFLUX DISEASE
     Dosage: (4 MG, 3 IN 1 D)
     Route: 048
     Dates: start: 20111208, end: 20111215
  2. DOMPERIDONE (DOMPERIDONE) [Concomitant]
  3. GAVISCON [Concomitant]

REACTIONS (2)
  - Screaming [None]
  - Muscle twitching [None]
